FAERS Safety Report 25813673 (Version 1)
Quarter: 2025Q3

REPORT INFORMATION
  Report Type: Spontaneous
  Country: BR (occurrence: BR)
  Receive Date: 20250917
  Receipt Date: 20250917
  Transmission Date: 20251021
  Serious: Yes (Hospitalization, Other)
  Sender: GILEAD
  Company Number: BR-GILEAD-2025-0728080

PATIENT
  Age: 46 Year
  Sex: Male
  Weight: 67 kg

DRUGS (2)
  1. YESCARTA [Suspect]
     Active Substance: AXICABTAGENE CILOLEUCEL
     Indication: Lymphoma
     Route: 042
     Dates: start: 20250908, end: 20250908
  2. YESCARTA [Suspect]
     Active Substance: AXICABTAGENE CILOLEUCEL
     Indication: Diffuse large B-cell lymphoma

REACTIONS (6)
  - Tachypnoea [Recovering/Resolving]
  - Pyrexia [Recovering/Resolving]
  - Hypoxia [Not Recovered/Not Resolved]
  - Tachycardia [Recovering/Resolving]
  - Leukopenia [Recovering/Resolving]
  - Cytokine release syndrome [Recovering/Resolving]

NARRATIVE: CASE EVENT DATE: 20250909
